FAERS Safety Report 17361587 (Version 1)
Quarter: 2020Q1

REPORT INFORMATION
  Report Type: Spontaneous
  Country: US (occurrence: US)
  Receive Date: 20200203
  Receipt Date: 20200203
  Transmission Date: 20200409
  Serious: No
  Sender: FDA-Public Use
  Company Number: US-PFIZER INC-2020044578

PATIENT

DRUGS (1)
  1. EFFEXOR XR [Suspect]
     Active Substance: VENLAFAXINE HYDROCHLORIDE
     Indication: ADVERSE DRUG REACTION
     Dosage: 150 MG, UNK

REACTIONS (3)
  - Withdrawal syndrome [Unknown]
  - Off label use [Unknown]
  - Product use in unapproved indication [Unknown]
